FAERS Safety Report 7946578-2 (Version None)
Quarter: 2011Q4

REPORT INFORMATION
  Report Type: 
  Country: None (occurrence: None)
  Receive Date: 20111122
  Receipt Date: 20111115
  Transmission Date: 20120403
  Serious: Yes (Other)
  Sender: FDA-Public Use
  Company Number: 2011SP053561

PATIENT
  Age: 30 Year
  Sex: Female

DRUGS (4)
  1. NEXPLANON [Suspect]
     Indication: PRODUCT USED FOR UNKNOWN INDICATION
     Dosage: 68 MG;SBDE
     Route: 059
     Dates: start: 20111027
  2. BENZYDAMINE [Concomitant]
  3. AMOXICILLIN AND CLAVULANATE POTASSIUM [Concomitant]
  4. FLOXACILLIN SODIUM [Concomitant]

REACTIONS (1)
  - IMPLANT SITE REACTION [None]
